FAERS Safety Report 19232283 (Version 1)
Quarter: 2021Q2

REPORT INFORMATION
  Report Type: Spontaneous
  Country: PL (occurrence: PL)
  Receive Date: 20210507
  Receipt Date: 20210507
  Transmission Date: 20210717
  Serious: Yes (Hospitalization, Other)
  Sender: FDA-Public Use
  Company Number: PL-MICRO LABS LIMITED-ML2021-01301

PATIENT
  Age: 36 Year
  Sex: Male

DRUGS (3)
  1. ALCOHOL. [Suspect]
     Active Substance: ALCOHOL
  2. DICLOFENAC [Suspect]
     Active Substance: DICLOFENAC
  3. BACLOFEN. [Suspect]
     Active Substance: BACLOFEN
     Dosage: }400 MG

REACTIONS (4)
  - Multiple organ dysfunction syndrome [Unknown]
  - Drug abuse [Unknown]
  - Rhabdomyolysis [Unknown]
  - Toxicity to various agents [Unknown]
